FAERS Safety Report 19080022 (Version 1)
Quarter: 2021Q1

REPORT INFORMATION
  Report Type: Other
  Country: PT (occurrence: PT)
  Receive Date: 20210331
  Receipt Date: 20210331
  Transmission Date: 20210420
  Serious: Yes (Hospitalization, Other)
  Sender: FDA-Public Use
  Company Number: PT-VALIDUS PHARMACEUTICALS LLC-PT-2021VAL000796

PATIENT
  Sex: Female

DRUGS (2)
  1. TRENTAL [Suspect]
     Active Substance: PENTOXIFYLLINE
     Dosage: 400 MG, QD
     Route: 065
  2. TRENTAL [Suspect]
     Active Substance: PENTOXIFYLLINE
     Indication: RAYNAUD^S PHENOMENON
     Dosage: 1200 MG, QD
     Route: 065
     Dates: start: 201802, end: 201805

REACTIONS (11)
  - Duodenal stenosis [Unknown]
  - Constipation [Unknown]
  - Asthenia [Unknown]
  - Pancreatic disorder [Unknown]
  - Weight decreased [Unknown]
  - Dizziness [Unknown]
  - Infarction [Unknown]
  - Abdominal distension [Unknown]
  - Diarrhoea [Unknown]
  - Syncope [Unknown]
  - Vomiting [Unknown]

NARRATIVE: CASE EVENT DATE: 2018
